FAERS Safety Report 5656204-3 (Version None)
Quarter: 2008Q1

REPORT INFORMATION
  Report Type: 
  Country: None (occurrence: None)
  Receive Date: 20080308
  Receipt Date: 20080229
  Transmission Date: 20080703
  Serious: Yes (Death, Hospitalization)
  Sender: FDA-Public Use
  Company Number: BE-ELI_LILLY_AND_COMPANY-BE200801003806

PATIENT
  Age: 44 Year
  Sex: Female

DRUGS (2)
  1. ZYPREXA [Suspect]
     Indication: BIPOLAR DISORDER
     Dosage: 30 MG, UNKNOWN
     Route: 065
     Dates: start: 20071214
  2. CLOPIXOL DEPOT [Concomitant]
     Dosage: UNK, UNKNOWN
     Route: 065
     Dates: start: 20071214

REACTIONS (2)
  - MYOCARDITIS [None]
  - OVERDOSE [None]
